FAERS Safety Report 18961631 (Version 2)
Quarter: 2021Q1

REPORT INFORMATION
  Report Type: Other
  Country: IT (occurrence: IT)
  Receive Date: 20210303
  Receipt Date: 20210308
  Transmission Date: 20210420
  Serious: No
  Sender: FDA-Public Use
  Company Number: IT-ROCHE-2779308

PATIENT
  Age: 33 Year
  Sex: Male
  Weight: 75 kg

DRUGS (9)
  1. METHYLPREDNISOLONE. [Concomitant]
     Active Substance: METHYLPREDNISOLONE
     Dosage: NEXT DOSE ON 19/MAR/2019, 25/OCT/2019, 24/APR/2020 AND 27/JAN/2021
     Route: 042
     Dates: start: 20190305
  2. PERFALGAN [Concomitant]
     Active Substance: ACETAMINOPHEN
     Route: 042
     Dates: start: 20200424, end: 20200424
  3. TRIMETON [Concomitant]
     Active Substance: CHLORPHENIRAMINE MALEATE
     Dosage: NEXT DOSE ON 25/OCT/2019
     Route: 042
     Dates: start: 20190305, end: 20190305
  4. PANTORC [Concomitant]
     Active Substance: PANTOPRAZOLE SODIUM
     Dosage: NEXT DOSE ON 19/MAR/2019, 25/OCT/2019, 24/APR/2020 AND 27/JAN/2021
     Route: 042
     Dates: start: 20190305, end: 20190305
  5. PARACETAMOL [Concomitant]
     Active Substance: ACETAMINOPHEN
     Dosage: NEXT DOSE ON 19/MAR/2019, 25/OCT/2019,
     Route: 042
     Dates: start: 20190305, end: 20190305
  6. OCRELIZUMAB. [Suspect]
     Active Substance: OCRELIZUMAB
     Indication: MULTIPLE SCLEROSIS
     Dosage: 300 MG/250 ML
     Route: 042
     Dates: start: 20190305, end: 20190305
  7. OCRELIZUMAB. [Suspect]
     Active Substance: OCRELIZUMAB
     Dosage: 300 MG/250 ML
     Route: 042
     Dates: start: 20190319, end: 20190319
  8. OCRELIZUMAB. [Suspect]
     Active Substance: OCRELIZUMAB
     Dosage: 600 MG/500 ML?NEXT DOSE ON 24/APR/2020 AND 27/JAN/2021
     Route: 042
     Dates: start: 20191025, end: 20191025
  9. TRIMETON [Concomitant]
     Active Substance: CHLORPHENIRAMINE MALEATE
     Dosage: 1 AMPULE?NEXT DOSE ON 24/APR/2020, 27/JAN/2021
     Route: 042
     Dates: start: 20190319, end: 20190319

REACTIONS (1)
  - Herpes virus infection [Recovered/Resolved]

NARRATIVE: CASE EVENT DATE: 20210109
